FAERS Safety Report 22633416 (Version 2)
Quarter: 2023Q2

REPORT INFORMATION
  Report Type: Spontaneous
  Country: US (occurrence: US)
  Receive Date: 20230623
  Receipt Date: 20230627
  Transmission Date: 20230722
  Serious: No
  Sender: FDA-Public Use
  Company Number: US-ABBVIE-5302297

PATIENT
  Sex: Female

DRUGS (1)
  1. VRAYLAR [Suspect]
     Active Substance: CARIPRAZINE
     Indication: Schizophrenia
     Dosage: STRENGTH: 4.5 MILLIGRAM
     Route: 048

REACTIONS (8)
  - Rhinorrhoea [Unknown]
  - Glycosylated haemoglobin increased [Recovered/Resolved]
  - Cough [Unknown]
  - Dizziness [Not Recovered/Not Resolved]
  - Tardive dyskinesia [Unknown]
  - Diabetes mellitus [Unknown]
  - Blood glucose increased [Not Recovered/Not Resolved]
  - Pollakiuria [Unknown]

NARRATIVE: CASE EVENT DATE: 20230101
